FAERS Safety Report 14636357 (Version 3)
Quarter: 2018Q4

REPORT INFORMATION
  Report Type: Report from Study
  Country: GB (occurrence: GB)
  Receive Date: 20180314
  Receipt Date: 20181111
  Transmission Date: 20190204
  Serious: No
  Sender: FDA-Public Use
  Company Number: PHHY2017GB184816

PATIENT
  Age: 57 Year
  Sex: Female

DRUGS (3)
  1. GELCLAIR [Concomitant]
     Indication: STOMATITIS
     Dosage: UNK
     Route: 065
     Dates: start: 20150827
  2. MOUTH WASH [Concomitant]
     Indication: STOMATITIS
     Dosage: UNK
     Route: 065
     Dates: start: 20150730
  3. AFINITOR [Suspect]
     Active Substance: EVEROLIMUS
     Indication: BREAST CANCER
     Dosage: 25 MG, UNK
     Route: 048
     Dates: start: 20150702, end: 20151218

REACTIONS (2)
  - Dry skin [Recovered/Resolved]
  - Skin disorder [Recovered/Resolved]

NARRATIVE: CASE EVENT DATE: 20150820
